FAERS Safety Report 18206789 (Version 1)
Quarter: 2020Q3

REPORT INFORMATION
  Report Type: Report from Study
  Country: IT (occurrence: IT)
  Receive Date: 20200828
  Receipt Date: 20200828
  Transmission Date: 20201103
  Serious: Yes (Hospitalization)
  Sender: FDA-Public Use
  Company Number: IT-ACCORD-197825

PATIENT
  Age: 39 Year
  Sex: Male

DRUGS (2)
  1. CLOZAPINE. [Suspect]
     Active Substance: CLOZAPINE
     Indication: PSYCHIATRIC DECOMPENSATION
     Route: 048
     Dates: start: 20200709
  2. DEPAKIN [Suspect]
     Active Substance: VALPROATE SODIUM
     Indication: BIPOLAR II DISORDER
     Route: 048
     Dates: start: 20200709

REACTIONS (4)
  - Bradyphrenia [Recovering/Resolving]
  - Hypokinesia [Recovering/Resolving]
  - Withdrawal syndrome [Recovering/Resolving]
  - Medication error [Unknown]

NARRATIVE: CASE EVENT DATE: 20200710
